FAERS Safety Report 7384899-5 (Version None)
Quarter: 2011Q1

REPORT INFORMATION
  Report Type: 
  Country: None (occurrence: None)
  Receive Date: 20110330
  Receipt Date: 20110303
  Transmission Date: 20110831
  Serious: No
  Sender: FDA-Public Use
  Company Number: US-B.I. PHARMACEUTICALS,INC./RIDGEFIELD-2011-BP-06285BP

PATIENT
  Age: 64 Year
  Sex: Male

DRUGS (7)
  1. ALTACE [Concomitant]
  2. COQ10 [Concomitant]
  3. PRADAXA [Suspect]
     Indication: ATRIAL FIBRILLATION
     Dosage: 300 MG
     Route: 048
     Dates: start: 20110201, end: 20110224
  4. LASIX [Concomitant]
  5. NADOLOL [Concomitant]
  6. ASPIRIN [Concomitant]
     Dosage: 81 MG
  7. CRESTOR [Concomitant]

REACTIONS (4)
  - NASAL OEDEMA [None]
  - DYSPEPSIA [None]
  - ARTHRALGIA [None]
  - SWOLLEN TONGUE [None]
